FAERS Safety Report 24338591 (Version 1)
Quarter: 2024Q3

REPORT INFORMATION
  Report Type: Spontaneous
  Country: US (occurrence: None)
  Receive Date: 20240918
  Receipt Date: 20240918
  Transmission Date: 20241016
  Serious: Yes (Hospitalization)
  Sender: Public
  Company Number: None

PATIENT
  Sex: Female

DRUGS (10)
  1. BENLYSTA [Suspect]
     Active Substance: BELIMUMAB
     Indication: Systemic lupus erythematosus
     Dosage: FREQ: INJECT 1 ML (200 MG TOTAL) INTO THE SKIN ONCE EVERY WEEK
     Route: 058
     Dates: start: 20210306
  2. BENLYSTA [Concomitant]
     Active Substance: BELIMUMAB
  3. BENZONATATE CAP [Concomitant]
  4. CYCLOBENZAPR TAB [Concomitant]
  5. FAMOTIDINE [Concomitant]
     Active Substance: FAMOTIDINE
  6. FEXOFENADINE HYDROCHLORIDE [Concomitant]
     Active Substance: FEXOFENADINE HYDROCHLORIDE
  7. FLUCONAZOLE TAB [Concomitant]
  8. GINGER ROOT CAP [Concomitant]
  9. HYDROCO/APAP TAB 7.5-325 [Concomitant]
  10. FLUTICASONE [Concomitant]
     Active Substance: FLUTICASONE

REACTIONS (1)
  - Liver transplant [None]
